FAERS Safety Report 4558545-X (Version None)
Quarter: 2005Q1

REPORT INFORMATION
  Report Type: 
  Country: None (occurrence: None)
  Receive Date: 20050121
  Receipt Date: 20041004
  Transmission Date: 20050727
  Serious: Yes (Other)
  Sender: FDA-Public Use
  Company Number: PHEH2004US10789

PATIENT
  Age: 65 Year
  Sex: Male
  Weight: 95 kg

DRUGS (8)
  1. DECADRON                                /CAN/ [Concomitant]
     Indication: MULTIPLE MYELOMA
     Dates: start: 20021101
  2. VELCADE [Concomitant]
     Dates: start: 20040927
  3. PREDNISONE [Concomitant]
     Indication: MULTIPLE MYELOMA
     Dosage: 50MG QOD-QD
     Dates: end: 20040901
  4. ALTACE [Concomitant]
  5. NORVASC [Concomitant]
  6. DIFLUCAN [Concomitant]
  7. THALIDOMIDE [Concomitant]
     Indication: MULTIPLE MYELOMA
     Dates: start: 20030701, end: 20040901
  8. ZOMETA [Suspect]
     Indication: MULTIPLE MYELOMA
     Dosage: 4 MG, UNK
     Dates: start: 20020201, end: 20040921

REACTIONS (8)
  - BONE DISORDER [None]
  - GINGIVAL ULCERATION [None]
  - GINGIVITIS [None]
  - INFECTION [None]
  - OSTEOMYELITIS [None]
  - OSTEONECROSIS [None]
  - PAIN IN JAW [None]
  - PRIMARY SEQUESTRUM [None]
